FAERS Safety Report 7589444-7 (Version None)
Quarter: 2011Q3

REPORT INFORMATION
  Report Type: 
  Country: None (occurrence: None)
  Receive Date: 20110705
  Receipt Date: 20110622
  Transmission Date: 20111222
  Serious: Yes (Hospitalization, Other)
  Sender: FDA-Public Use
  Company Number: US-ROCHE-769587

PATIENT
  Sex: Female
  Weight: 64.4 kg

DRUGS (3)
  1. ACCUTANE [Suspect]
     Route: 048
     Dates: start: 19990302, end: 19990621
  2. AMOXICILLIN [Concomitant]
  3. ACCUTANE [Suspect]
     Indication: ACNE
     Route: 048
     Dates: start: 19990119

REACTIONS (19)
  - ENTEROCOLITIS HAEMORRHAGIC [None]
  - ERYTHEMA NODOSUM [None]
  - BLOOD CHOLESTEROL INCREASED [None]
  - COLITIS ULCERATIVE [None]
  - HAEMORRHOIDS [None]
  - OSTEOPENIA [None]
  - CROHN'S DISEASE [None]
  - DEPRESSION [None]
  - EPISCLERITIS [None]
  - IRRITABLE BOWEL SYNDROME [None]
  - INTESTINAL STENOSIS [None]
  - ABDOMINAL ABSCESS [None]
  - FISTULA [None]
  - INTESTINAL OBSTRUCTION [None]
  - BLOOD TRIGLYCERIDES INCREASED [None]
  - BRONCHITIS [None]
  - ULCERATIVE KERATITIS [None]
  - INFLAMMATORY BOWEL DISEASE [None]
  - EMOTIONAL DISTRESS [None]
